FAERS Safety Report 4612423-6 (Version None)
Quarter: 2005Q1

REPORT INFORMATION
  Report Type: 
  Country: None (occurrence: None)
  Receive Date: 20050316
  Receipt Date: 20050225
  Transmission Date: 20050727
  Serious: Yes (Other)
  Sender: FDA-Public Use
  Company Number: US_0412109210

PATIENT
  Sex: Male

DRUGS (1)
  1. ZYPREXA [Suspect]
     Indication: POST-TRAUMATIC STRESS DISORDER
     Dates: start: 19980302

REACTIONS (4)
  - DIABETES MELLITUS INSULIN-DEPENDENT [None]
  - HEPATIC FAILURE [None]
  - HEPATIC STEATOSIS [None]
  - PANCREATITIS [None]
